FAERS Safety Report 8738902 (Version 2)
Quarter: 2012Q4

REPORT INFORMATION
  Report Type: Spontaneous
  Country: JP (occurrence: None)
  Receive Date: 20120806
  Receipt Date: 20120816
  Transmission Date: 20130627
  Serious: Yes (Other)
  Sender: FDA-Public Use
  Company Number: JP-2012-15914

PATIENT
  Age: 61 Year
  Sex: Male

DRUGS (1)
  1. PLETAL [Suspect]
     Dosage: ORAL
     Route: 048

REACTIONS (1)
  - PROCEDURAL HAEMORRHAGE [None]
